FAERS Safety Report 9828263 (Version 2)
Quarter: 2014Q1

REPORT INFORMATION
  Report Type: Spontaneous
  Country: US (occurrence: US)
  Receive Date: 20140117
  Receipt Date: 20140206
  Transmission Date: 20141002
  Serious: Yes (Congenital Anomaly, Other)
  Sender: FDA-Public Use
  Company Number: US-PFIZER INC-2014014179

PATIENT
  Sex: Male

DRUGS (8)
  1. ZOLOFT [Suspect]
     Indication: ANXIETY
     Dosage: UNK
     Route: 064
     Dates: start: 199201, end: 1997
  2. ZOLOFT [Suspect]
     Indication: DEPRESSION
     Dosage: UNK
     Route: 064
     Dates: start: 2004, end: 2009
  3. ZOLOFT [Suspect]
     Indication: AFFECTIVE DISORDER
  4. PRENATE ELITE [Concomitant]
     Dosage: UNK
     Route: 064
  5. PREMESISRX [Concomitant]
     Dosage: UNK
     Route: 064
  6. SULFAMETH/TRIMETHOPRIM [Concomitant]
     Dosage: UNK
     Route: 064
  7. LOW-OGESTREL [Concomitant]
     Dosage: UNK
     Route: 064
  8. ALPRAZOLAM [Concomitant]
     Dosage: UNK
     Route: 064

REACTIONS (6)
  - Maternal exposure during pregnancy [Unknown]
  - Spina bifida [Unknown]
  - Congenital hydrocephalus [Unknown]
  - Arnold-Chiari malformation [Unknown]
  - Congenital anomaly [Unknown]
  - Otitis media chronic [Unknown]
